FAERS Safety Report 5177367-2 (Version None)
Quarter: 2006Q4

REPORT INFORMATION
  Report Type: 
  Country: None (occurrence: None)
  Receive Date: 20061207
  Receipt Date: 20061124
  Transmission Date: 20070319
  Serious: Yes (Hospitalization)
  Sender: FDA-Public Use
  Company Number: 2006145576

PATIENT
  Age: 23 Year
  Sex: Female
  Weight: 79 kg

DRUGS (2)
  1. SOLU-MEDROL [Suspect]
     Dosage: INTRAVENOUS
     Route: 042
  2. PREDNISOLONE [Suspect]
     Dosage: ORAL
     Route: 048

REACTIONS (9)
  - BLOOD PRESSURE INCREASED [None]
  - CORNEAL TRANSPLANT [None]
  - DRUG INTOLERANCE [None]
  - EYE DISORDER [None]
  - LOSS OF CONSCIOUSNESS [None]
  - MALAISE [None]
  - OPTIC NEURITIS [None]
  - RASH [None]
  - TACHYCARDIA [None]
